FAERS Safety Report 4454816-6 (Version None)
Quarter: 2004Q3

REPORT INFORMATION
  Report Type: 
  Country: None (occurrence: None)
  Receive Date: 20040826
  Receipt Date: 20040607
  Transmission Date: 20050211
  Serious: No
  Sender: FDA-Public Use
  Company Number: 2004US002170

PATIENT
  Age: 37 Year
  Sex: Female
  Weight: 67.1 kg

DRUGS (7)
  1. ALOXI [Suspect]
     Indication: PROPHYLAXIS OF NAUSEA AND VOMITING
     Dosage: 0.25 MG, SINGLE, IV BOLUS
     Route: 040
     Dates: start: 20040604, end: 20040604
  2. EMEND [Suspect]
     Indication: PROPHYLAXIS OF NAUSEA AND VOMITING
     Dosage: 125 MG, SINGLE; ORAL (SEE IMAGE)
     Route: 048
     Dates: start: 20040604, end: 20040604
  3. EMEND [Suspect]
     Indication: PROPHYLAXIS OF NAUSEA AND VOMITING
     Dosage: 125 MG, SINGLE; ORAL (SEE IMAGE)
     Route: 048
     Dates: start: 20040605, end: 20040605
  4. EMEND [Suspect]
     Indication: PROPHYLAXIS OF NAUSEA AND VOMITING
     Dosage: 125 MG, SINGLE; ORAL (SEE IMAGE)
     Route: 048
     Dates: start: 20040606, end: 20040606
  5. DECADRON [Concomitant]
  6. CYTOXAN [Concomitant]
  7. ADRIAMYCIN PFS [Concomitant]

REACTIONS (2)
  - DRUG EFFECT DECREASED [None]
  - NAUSEA [None]
